FAERS Safety Report 12646182 (Version 1)
Quarter: 2016Q3

REPORT INFORMATION
  Report Type: Spontaneous
  Country: US (occurrence: US)
  Receive Date: 20160811
  Receipt Date: 20160811
  Transmission Date: 20161109
  Serious: No
  Sender: FDA-Public Use
  Company Number: US-ENDO PHARMACEUTICALS INC.-2015-004025

PATIENT
  Sex: Female
  Weight: 54 kg

DRUGS (9)
  1. PREDNISONE TABLETS [Suspect]
     Active Substance: PREDNISONE
     Indication: IMMUNE SYSTEM DISORDER
     Route: 065
     Dates: start: 2015, end: 2015
  2. PREDNISONE TABLETS [Suspect]
     Active Substance: PREDNISONE
     Route: 065
     Dates: start: 20150903, end: 20150914
  3. PREDNISONE TABLETS [Suspect]
     Active Substance: PREDNISONE
     Route: 065
     Dates: start: 2015, end: 20151101
  4. HYDROCODONE BITARTRATE AND ACETAMINOPHEN [Concomitant]
     Active Substance: ACETAMINOPHEN\HYDROCODONE BITARTRATE
     Indication: SLEEP DISORDER
  5. PREDNISONE TABLETS [Suspect]
     Active Substance: PREDNISONE
     Route: 065
     Dates: start: 2015, end: 2015
  6. PREDNISONE TABLETS [Suspect]
     Active Substance: PREDNISONE
     Route: 065
  7. HYDROCODONE BITARTRATE AND ACETAMINOPHEN [Concomitant]
     Active Substance: ACETAMINOPHEN\HYDROCODONE BITARTRATE
     Indication: PAIN
  8. PREDNISONE TABLETS [Suspect]
     Active Substance: PREDNISONE
     Route: 065
     Dates: start: 2015, end: 2015
  9. RHEUMATREX [Concomitant]
     Active Substance: METHOTREXATE SODIUM
     Indication: IMMUNE SYSTEM DISORDER

REACTIONS (2)
  - Drug effect decreased [Unknown]
  - Intentional product use issue [Recovered/Resolved]

NARRATIVE: CASE EVENT DATE: 2015
